FAERS Safety Report 6746314-1 (Version None)
Quarter: 2010Q2

REPORT INFORMATION
  Report Type: 
  Country: None (occurrence: None)
  Receive Date: 20100528
  Receipt Date: 20100519
  Transmission Date: 20101027
  Serious: Yes (Other)
  Sender: FDA-Public Use
  Company Number: JP-PFIZER INC-2010058957

PATIENT
  Age: 74 Year
  Sex: Female

DRUGS (12)
  1. NORVASC [Suspect]
     Dosage: 5 MG, 2X/DAY
     Route: 048
  2. SOLANAX [Suspect]
     Dosage: 0.4 MG, AS NEEDED
     Route: 048
  3. KINEDAK [Suspect]
     Dosage: 50 MG, 3X/DAY
     Route: 048
  4. ASPIRIN [Concomitant]
     Dosage: UNK
     Route: 048
  5. CRESTOR [Concomitant]
     Dosage: UNK
     Route: 048
  6. RISEDRONATE SODIUM HYDRATE [Concomitant]
     Dosage: UNK
     Route: 048
  7. CIRCANETTEN [Concomitant]
     Dosage: UNK
     Route: 048
  8. LENDORMIN [Concomitant]
     Dosage: UNK
     Route: 048
  9. GASCON [Concomitant]
     Dosage: UNK
     Route: 048
  10. AMARYL [Concomitant]
     Dosage: UNK
     Route: 048
  11. TOUKISHAKUYAKUSAN [Concomitant]
     Dosage: UNK
     Route: 048
  12. HYALEIN [Concomitant]
     Dosage: UNK
     Route: 031
     Dates: start: 20080610

REACTIONS (6)
  - ASTHENOPIA [None]
  - DRY EYE [None]
  - EYE PAIN [None]
  - EYELID DISORDER [None]
  - PHOTOPHOBIA [None]
  - VISUAL ACUITY REDUCED [None]
